FAERS Safety Report 5709214-1 (Version None)
Quarter: 2008Q2

REPORT INFORMATION
  Report Type: 
  Country: None (occurrence: None)
  Receive Date: 20080418
  Receipt Date: 20080326
  Transmission Date: 20081010
  Serious: Yes (Other)
  Sender: FDA-Public Use
  Company Number: GB-ASTRAZENECA-2008GB00727

PATIENT

DRUGS (2)
  1. SEROQUEL [Suspect]
     Route: 048
  2. CITALOPRAM HYDROBROMIDE [Suspect]

REACTIONS (2)
  - OVERDOSE [None]
  - SEROTONIN SYNDROME [None]
